FAERS Safety Report 16803500 (Version 2)
Quarter: 2019Q4

REPORT INFORMATION
  Report Type: Report from Study
  Country: CA (occurrence: CA)
  Receive Date: 20190913
  Receipt Date: 20191009
  Transmission Date: 20200122
  Serious: Yes (Other)
  Sender: FDA-Public Use
  Company Number: CA-ROCHE-2190512

PATIENT
  Age: 45 Year
  Sex: Female
  Weight: 72.5 kg

DRUGS (3)
  1. PANTOLOC [PANTOPRAZOLE] [Concomitant]
     Active Substance: PANTOPRAZOLE SODIUM
  2. STATEX [MORPHINE SULFATE] [Concomitant]
     Active Substance: MORPHINE SULFATE
  3. OCREVUS [Suspect]
     Active Substance: OCRELIZUMAB
     Indication: RELAPSING-REMITTING MULTIPLE SCLEROSIS
     Dosage: AT DAY 0 AND DAY 14 AND THEN 600 MG
     Route: 042
     Dates: start: 20180921

REACTIONS (5)
  - Ovarian cyst [Recovered/Resolved]
  - Infusion related reaction [Recovering/Resolving]
  - Paraesthesia [Not Recovered/Not Resolved]
  - Ovarian cyst [Unknown]
  - Hypoaesthesia [Not Recovered/Not Resolved]

NARRATIVE: CASE EVENT DATE: 20180921
